FAERS Safety Report 5268337-4 (Version None)
Quarter: 2007Q1

REPORT INFORMATION
  Report Type: 
  Country: None (occurrence: None)
  Receive Date: 20070319
  Receipt Date: 20070309
  Transmission Date: 20070707
  Serious: Yes (Death, Life-Threatening, Hospitalization, Other)
  Sender: FDA-Public Use
  Company Number: ZA-AVENTIS-200614324EU

PATIENT
  Age: 73 Year
  Sex: Female

DRUGS (30)
  1. ENOXAPARIN SODIUM [Suspect]
     Route: 058
     Dates: start: 20060703, end: 20060706
  2. VOLTAREN [Concomitant]
     Route: 048
  3. PHARMAPRESS                        /00574902/ [Concomitant]
     Indication: HYPERTENSION
     Route: 048
     Dates: start: 20010101, end: 20060706
  4. DIGOXIN [Concomitant]
     Indication: HYPERTENSION
     Route: 048
     Dates: start: 20010101, end: 20060706
  5. RIDAQ [Concomitant]
     Indication: HYPERTENSION
     Route: 048
     Dates: start: 20010101, end: 20060706
  6. KEFZOL [Concomitant]
     Route: 042
     Dates: start: 20060704, end: 20060710
  7. MORFINE [Concomitant]
     Route: 030
     Dates: start: 20060704, end: 20060710
  8. ENALAPRIL MALEATE [Concomitant]
     Indication: HYPERTENSION
     Route: 048
     Dates: start: 20060705, end: 20060706
  9. LOSEC                              /00661201/ [Concomitant]
     Route: 048
     Dates: start: 20060707
  10. LOSEC                              /00661201/ [Concomitant]
     Route: 048
     Dates: start: 20060709, end: 20060714
  11. LOSEC                              /00661201/ [Concomitant]
     Route: 048
     Dates: start: 20060715, end: 20060716
  12. LOSEC                              /00661201/ [Concomitant]
     Indication: ACUTE ABDOMEN
     Route: 048
     Dates: start: 20060707
  13. LOSEC                              /00661201/ [Concomitant]
     Route: 048
     Dates: start: 20060709, end: 20060714
  14. LOSEC                              /00661201/ [Concomitant]
     Route: 048
     Dates: start: 20060715, end: 20060716
  15. ULSANIC [Concomitant]
     Route: 048
     Dates: start: 20060707
  16. ZINACEF                            /00454601/ [Concomitant]
     Route: 042
     Dates: start: 20060707
  17. FLAGYL [Concomitant]
     Route: 042
     Dates: start: 20060707
  18. DURAVENT [Concomitant]
     Indication: BRONCHOSPASM
     Route: 055
     Dates: start: 20060703, end: 20060720
  19. VITAMIN K [Concomitant]
     Indication: DISSEMINATED INTRAVASCULAR COAGULATION
     Dates: start: 20060711, end: 20060720
  20. CYKLOKAPRON [Concomitant]
     Indication: DISSEMINATED INTRAVASCULAR COAGULATION
     Dates: start: 20060717, end: 20060720
  21. BENZODIAZEPINE DERIVATIVES [Concomitant]
     Indication: SEDATION
     Dates: start: 20060704, end: 20060712
  22. VECURONIUM BROMIDE [Concomitant]
     Indication: INTUBATION
     Dates: start: 20060707, end: 20060707
  23. ASPIRIN [Concomitant]
     Indication: HYPERTENSION
     Dates: start: 20060709, end: 20060710
  24. RENITEC                            /00574901/ [Concomitant]
     Indication: HYPERTENSION
     Dates: start: 20060703, end: 20060703
  25. ADCO-ATENOLOL [Concomitant]
     Indication: HYPERTENSION
     Dates: start: 20060703, end: 20060703
  26. ISORDIL [Concomitant]
     Dates: start: 20060709, end: 20060710
  27. HEPARIN [Concomitant]
     Indication: DISSEMINATED INTRAVASCULAR COAGULATION
     Dates: start: 20060709, end: 20060710
  28. FENTANYL [Concomitant]
     Dates: start: 20060707, end: 20060708
  29. FENTANYL [Concomitant]
     Indication: INFECTION
     Dates: start: 20060707, end: 20060708
  30. CLEXANE [Concomitant]
     Dates: start: 20060707, end: 20060710

REACTIONS (11)
  - ACUTE ABDOMEN [None]
  - BLISTER [None]
  - DISSEMINATED INTRAVASCULAR COAGULATION [None]
  - EPISTAXIS [None]
  - HYPOGLYCAEMIA [None]
  - MOUTH HAEMORRHAGE [None]
  - MULTI-ORGAN FAILURE [None]
  - RECTAL HAEMORRHAGE [None]
  - RENAL FAILURE [None]
  - SHOCK [None]
  - WOUND HAEMORRHAGE [None]
